FAERS Safety Report 18163508 (Version 1)
Quarter: 2020Q3

REPORT INFORMATION
  Report Type: Report from Study
  Country: None (occurrence: US)
  Receive Date: 20200818
  Receipt Date: 20200818
  Transmission Date: 20201103
  Serious: Yes (Hospitalization)
  Sender: FDA-Public Use
  Company Number: US-ABBVIE-20K-163-3526868-00

PATIENT
  Age: 44 Year
  Sex: Male

DRUGS (2)
  1. HUMIRA [Suspect]
     Active Substance: ADALIMUMAB
     Indication: HIDRADENITIS
     Route: 058
  2. HUMIRA [Suspect]
     Active Substance: ADALIMUMAB
     Indication: CROHN^S DISEASE

REACTIONS (7)
  - Anorectal discomfort [Recovered/Resolved]
  - Chills [Unknown]
  - White blood cell count abnormal [Unknown]
  - Blood potassium abnormal [Unknown]
  - Swelling [Recovered/Resolved]
  - Hypertension [Recovered/Resolved]
  - Aneurysmal bone cyst [Unknown]

NARRATIVE: CASE EVENT DATE: 202008
